FAERS Safety Report 24371299 (Version 1)
Quarter: 2024Q3

REPORT INFORMATION
  Report Type: Spontaneous
  Country: GB (occurrence: GB)
  Receive Date: 20240927
  Receipt Date: 20240927
  Transmission Date: 20241017
  Serious: Yes (Hospitalization)
  Sender: MYLAN
  Company Number: GB-MYLANLABS-2024M1086156

PATIENT
  Age: 56 Year
  Sex: Female

DRUGS (8)
  1. METHADONE [Suspect]
     Active Substance: METHADONE HYDROCHLORIDE
     Indication: Drug withdrawal maintenance therapy
     Dosage: UNK
     Route: 065
  2. BUPRENORPHINE [Suspect]
     Active Substance: BUPRENORPHINE
     Indication: Drug withdrawal maintenance therapy
     Dosage: 400 MICROGRAM, QD
     Route: 060
  3. BUPRENORPHINE [Suspect]
     Active Substance: BUPRENORPHINE
     Dosage: 800 MICROGRAM, QD (DOSE INCREASED ON DAY 2)
     Route: 060
  4. BUPRENORPHINE [Suspect]
     Active Substance: BUPRENORPHINE
     Dosage: 1.6 MILLIGRAM, QD (DOSE INCREASED ON DAY 3)
     Route: 060
  5. BUPRENORPHINE [Suspect]
     Active Substance: BUPRENORPHINE
     Dosage: 2 MILLIGRAM, QD (DOSE INCREASED ON DAY 4)
     Route: 060
  6. BUPRENORPHINE [Suspect]
     Active Substance: BUPRENORPHINE
     Dosage: 6 MILLIGRAM, QD (ON DAY 6 TITRATION)
     Route: 060
  7. ZUCLOPENTHIXOL [Concomitant]
     Active Substance: ZUCLOPENTHIXOL
     Indication: Mental disorder
     Dosage: 300 MILLIGRAM, BIWEEKLY (DEPOT)
     Route: 065
  8. LORAZEPAM [Concomitant]
     Active Substance: LORAZEPAM
     Indication: Insomnia
     Dosage: UNK
     Route: 065

REACTIONS (6)
  - Muscle atrophy [Unknown]
  - Treatment noncompliance [Unknown]
  - Behaviour disorder [Recovered/Resolved]
  - Psychotic disorder [Recovered/Resolved]
  - Decreased appetite [Unknown]
  - Verbal abuse [Unknown]
